FAERS Safety Report 8231213-9 (Version None)
Quarter: 2012Q1

REPORT INFORMATION
  Report Type: 
  Country: None (occurrence: None)
  Receive Date: 20120323
  Receipt Date: 20120323
  Transmission Date: 20120608
  Serious: Yes (Hospitalization, Other)
  Sender: FDA-Public Use
  Company Number: None

PATIENT
  Age: 16 Year
  Sex: Female
  Weight: 58.967 kg

DRUGS (2)
  1. AMITRIPTYLINE HCL [Suspect]
     Indication: NEURALGIA
     Dosage: 1 TABLET
     Route: 048
     Dates: start: 20120130, end: 20120215
  2. AMITRIPTYLINE HCL [Suspect]
     Indication: NEURALGIA
     Dosage: 1 TABLET
     Route: 048

REACTIONS (16)
  - CONFUSIONAL STATE [None]
  - PHOTOPHOBIA [None]
  - DYSKINESIA [None]
  - HYPOAESTHESIA [None]
  - PANIC ATTACK [None]
  - FEAR [None]
  - ANGER [None]
  - DYSGEUSIA [None]
  - INAPPROPRIATE AFFECT [None]
  - FEELING COLD [None]
  - HYPERHIDROSIS [None]
  - CRYING [None]
  - LOSS OF CONSCIOUSNESS [None]
  - MEMORY IMPAIRMENT [None]
  - DISORIENTATION [None]
  - INSOMNIA [None]
